FAERS Safety Report 25057354 (Version 3)
Quarter: 2025Q2

REPORT INFORMATION
  Report Type: Spontaneous
  Country: US (occurrence: US)
  Receive Date: 20250310
  Receipt Date: 20250408
  Transmission Date: 20250717
  Serious: Yes (Other)
  Sender: ROCHE
  Company Number: US-ROCHE-10000219941

PATIENT
  Age: 69 Year
  Sex: Male
  Weight: 74.84 kg

DRUGS (7)
  1. VABYSMO [Suspect]
     Active Substance: FARICIMAB-SVOA
     Indication: Neovascular age-related macular degeneration
     Dosage: 6 MG/ 0.05ML
     Route: 050
     Dates: start: 20240715, end: 20250203
  2. LOSARTAN [Concomitant]
     Active Substance: LOSARTAN
     Indication: Hypertension
     Route: 048
  3. CLONIDINE [Concomitant]
     Active Substance: CLONIDINE
     Indication: Hypertension
     Route: 048
  4. SYNTHROID [Concomitant]
     Active Substance: LEVOTHYROXINE SODIUM
     Route: 048
  5. CARVEDILOL [Concomitant]
     Active Substance: CARVEDILOL
     Indication: Hypertension
     Route: 048
  6. NIFEDIPINE [Concomitant]
     Active Substance: NIFEDIPINE
     Indication: Hypertension
     Route: 048
  7. ASPIRIN [Concomitant]
     Active Substance: ASPIRIN

REACTIONS (8)
  - Off label use [Unknown]
  - Eye disorder [Recovered/Resolved]
  - Vitreous floaters [Recovered/Resolved]
  - Iritis [Recovered/Resolved]
  - Injection site pain [Recovered/Resolved]
  - Blindness [Recovered/Resolved]
  - Foreign body sensation in eyes [Recovered/Resolved]
  - Visual impairment [Not Recovered/Not Resolved]

NARRATIVE: CASE EVENT DATE: 20250201
